FAERS Safety Report 12613824 (Version 2)
Quarter: 2016Q3

REPORT INFORMATION
  Report Type: Spontaneous
  Country: US (occurrence: US)
  Receive Date: 20160802
  Receipt Date: 20160829
  Transmission Date: 20161109
  Serious: Yes (Hospitalization)
  Sender: FDA-Public Use
  Company Number: US-PFIZER INC-2016336809

PATIENT
  Age: 74 Year
  Sex: Female
  Weight: 64 kg

DRUGS (5)
  1. PREMPRO [Suspect]
     Active Substance: ESTROGENS, CONJUGATED\MEDROXYPROGESTERONE ACETATE
     Dosage: UNK(ESTROGENS CONJUGATED-0.3MG, MEDROXYPROGESTERONE ACETATE-1.5MG)
     Dates: start: 2016
  2. PREMPHASE [Suspect]
     Active Substance: ESTROGENS, CONJUGATED\MEDROXYPROGESTERONE ACETATE
     Dosage: UNK, 1X/DAY
     Dates: start: 2016
  3. PREMPRO [Suspect]
     Active Substance: ESTROGENS, CONJUGATED\MEDROXYPROGESTERONE ACETATE
     Dosage: UNK(ESTROGENS CONJUGATED-0.45MG, MEDROXYPROGESTERONE ACETATE-1.5MG)
     Dates: start: 2016
  4. PREMPHASE [Suspect]
     Active Substance: ESTROGENS, CONJUGATED\MEDROXYPROGESTERONE ACETATE
     Dosage: UNK
  5. PREMPRO [Suspect]
     Active Substance: ESTROGENS, CONJUGATED\MEDROXYPROGESTERONE ACETATE
     Indication: MENOPAUSAL SYMPTOMS
     Dosage: UNK(ESTROGENS CONJUGATED-0.3MG, MEDROXYPROGESTERONE ACETATE-1.5MG)
     Dates: start: 2016

REACTIONS (13)
  - Chest pain [Not Recovered/Not Resolved]
  - Haemoptysis [Unknown]
  - Oropharyngeal pain [Unknown]
  - Headache [Unknown]
  - Feeling abnormal [Not Recovered/Not Resolved]
  - Rhinorrhoea [Unknown]
  - Nasopharyngitis [Recovering/Resolving]
  - Alopecia [Not Recovered/Not Resolved]
  - Ageusia [Unknown]
  - Pyrexia [Unknown]
  - Depression [Unknown]
  - Influenza like illness [Unknown]
  - Sensory loss [Not Recovered/Not Resolved]

NARRATIVE: CASE EVENT DATE: 2016
